FAERS Safety Report 13253715 (Version 2)
Quarter: 2022Q1

REPORT INFORMATION
  Report Type: Spontaneous
  Country: US (occurrence: US)
  Receive Date: 20170220
  Receipt Date: 20220210
  Transmission Date: 20220423
  Serious: No
  Sender: FDA-Public Use
  Company Number: US-ACADIA PHARMACEUTICALS INC.-ACA-2017-002086

PATIENT
  Sex: Female

DRUGS (4)
  1. NUPLAZID [Suspect]
     Active Substance: PIMAVANSERIN TARTRATE
     Indication: Parkinson^s disease
     Dosage: 34 MILLIGRAM, QD
     Route: 048
  2. NUPLAZID [Suspect]
     Active Substance: PIMAVANSERIN TARTRATE
     Indication: Hallucination
     Dosage: 34 MG, QD
     Route: 048
  3. NUPLAZID [Suspect]
     Active Substance: PIMAVANSERIN TARTRATE
     Indication: Delusion
  4. NUPLAZID [Suspect]
     Active Substance: PIMAVANSERIN TARTRATE
     Indication: Parkinson^s disease psychosis

REACTIONS (3)
  - Adverse drug reaction [Unknown]
  - Product dose omission issue [Unknown]
  - Drug ineffective [Unknown]
